FAERS Safety Report 5987203-X (Version None)
Quarter: 2008Q4

REPORT INFORMATION
  Report Type: 
  Country: None (occurrence: None)
  Receive Date: 20081126
  Receipt Date: 20080108
  Transmission Date: 20090506
  Serious: Yes (Other)
  Sender: FDA-Public Use
  Company Number: 2007BH008498

PATIENT
  Age: 73 Year
  Sex: Female
  Weight: 86.3 kg

DRUGS (16)
  1. DIANEAL [Suspect]
     Indication: PERITONEAL DIALYSIS
     Dosage: EVERY DAY; IP
     Route: 033
  2. DIANEAL [Suspect]
     Indication: PERITONEAL DIALYSIS
     Dosage: IP
     Route: 033
  3. EPOGEN [Concomitant]
  4. MIRALAX [Concomitant]
  5. SENSIPAR [Concomitant]
  6. VITAMIN D [Concomitant]
  7. WELCHOL [Concomitant]
  8. GLIPIZIDE [Concomitant]
  9. LISINOPRIL [Concomitant]
  10. ALLOPURINOL [Concomitant]
  11. RENAGEL [Concomitant]
  12. POTASSIUM CHLORIDE [Concomitant]
  13. ACIPHEX [Concomitant]
  14. FUROSEMIDE [Concomitant]
  15. CLONAZEPAM [Concomitant]
  16. PIOGLITAZONE [Concomitant]

REACTIONS (2)
  - NAUSEA [None]
  - PERITONITIS BACTERIAL [None]
